FAERS Safety Report 15001258 (Version 1)
Quarter: 2018Q2

REPORT INFORMATION
  Report Type: Spontaneous
  Country: US (occurrence: US)
  Receive Date: 20180521
  Receipt Date: 20180521
  Transmission Date: 20180711
  Serious: Yes (Hospitalization)
  Sender: FDA-Public Use
  Company Number: None

PATIENT
  Age: 66 Year
  Sex: Male

DRUGS (1)
  1. ZEPATIER [Suspect]
     Active Substance: ELBASVIR\GRAZOPREVIR
     Indication: HEPATITIS C
     Route: 048
     Dates: start: 20171025, end: 20180123

REACTIONS (13)
  - Atrial fibrillation [None]
  - Chills [None]
  - Dyspnoea [None]
  - Tremor [None]
  - Feeling hot [None]
  - Chest discomfort [None]
  - Cellulitis [None]
  - Migraine [None]
  - Nausea [None]
  - Haemorrhage [None]
  - Vision blurred [None]
  - Dermatillomania [None]
  - Asthenia [None]

NARRATIVE: CASE EVENT DATE: 20171103
